FAERS Safety Report 4884841-2 (Version None)
Quarter: 2006Q1

REPORT INFORMATION
  Report Type: 
  Country: None (occurrence: None)
  Receive Date: 20060119
  Receipt Date: 20060117
  Transmission Date: 20060701
  Serious: Yes (Other)
  Sender: FDA-Public Use
  Company Number: US-GLAXOSMITHKLINE-A0589643A

PATIENT
  Age: 72 Year
  Sex: Female

DRUGS (10)
  1. AUGMENTIN '125' [Suspect]
     Dosage: 2TAB TWICE PER DAY
     Route: 048
     Dates: start: 20060101, end: 20060101
  2. SYNTHROID [Concomitant]
  3. LOPRESSOR [Concomitant]
  4. WATER PILL [Concomitant]
  5. DIAZEPAM [Concomitant]
  6. PRAVACHOL [Concomitant]
  7. ALBUTEROL [Concomitant]
  8. MULTI-VITAMIN [Concomitant]
  9. SENNA [Concomitant]
  10. MIRALAX [Concomitant]

REACTIONS (2)
  - DIARRHOEA HAEMORRHAGIC [None]
  - HAEMORRHOIDS [None]
